FAERS Safety Report 12609560 (Version 1)
Quarter: 2016Q3

REPORT INFORMATION
  Report Type: Spontaneous
  Country: US (occurrence: US)
  Receive Date: 20160801
  Receipt Date: 20160801
  Transmission Date: 20161109
  Serious: No
  Sender: FDA-Public Use
  Company Number: US-TEVA-660788USA

PATIENT
  Sex: Female
  Weight: 49.94 kg

DRUGS (1)
  1. BACLOFEN. [Suspect]
     Active Substance: BACLOFEN
     Indication: CYSTITIS INTERSTITIAL

REACTIONS (4)
  - Euphoric mood [Unknown]
  - Insomnia [Unknown]
  - Pain [Unknown]
  - Intentional product misuse [Fatal]
